FAERS Safety Report 21948573 (Version 1)
Quarter: 2023Q1

REPORT INFORMATION
  Report Type: Spontaneous
  Country: US (occurrence: US)
  Receive Date: 20230203
  Receipt Date: 20230203
  Transmission Date: 20230418
  Serious: Yes (Other)
  Sender: FDA-Public Use
  Company Number: US-002147023-NVSC2023US018703

PATIENT
  Age: 20 Year
  Sex: Male

DRUGS (3)
  1. CARBOPLATIN [Suspect]
     Active Substance: CARBOPLATIN
     Indication: Plasmablastic lymphoma
     Dosage: DOSE REDUCED, CYCLIC
     Route: 065
  2. IFOSFAMIDE [Suspect]
     Active Substance: IFOSFAMIDE
     Indication: Plasmablastic lymphoma
     Dosage: DOSE REDUCED
     Route: 065
  3. ETOPOSIDE [Suspect]
     Active Substance: ETOPOSIDE
     Indication: Plasmablastic lymphoma
     Dosage: DOSE REDUCED, CYCLIC
     Route: 065

REACTIONS (4)
  - Retroperitoneal haematoma [Unknown]
  - Pancytopenia [Unknown]
  - Hypertransaminasaemia [Unknown]
  - Product use in unapproved indication [Unknown]
